FAERS Safety Report 8210324-8 (Version None)
Quarter: 2012Q1

REPORT INFORMATION
  Report Type: 
  Country: None (occurrence: None)
  Receive Date: 20120314
  Receipt Date: 20120305
  Transmission Date: 20120608
  Serious: Yes (Death)
  Sender: FDA-Public Use
  Company Number: US-ROCHE-1048248

PATIENT
  Age: 81 Year

DRUGS (6)
  1. TEMOZOLOMIDE [Suspect]
     Indication: CENTRAL NERVOUS SYSTEM LYMPHOMA
     Dosage: ON DAY 7-11 FOR ODD NUMBERED 4 CYCLES
     Route: 048
  2. ACETAMINOPHEN [Concomitant]
  3. DIPHENHYDRAMINE HCL [Concomitant]
     Dosage: DOSE: 25-50 MG
  4. LEUCOVORIN CALCIUM [Concomitant]
     Indication: CENTRAL NERVOUS SYSTEM LYMPHOMA
     Route: 042
  5. METHOTREXATE [Suspect]
     Indication: CENTRAL NERVOUS SYSTEM LYMPHOMA
     Dosage: DOSE: 8 G/M2 OVER 4 HOURS ON DAY 1 OF EACH 14 DAY CYCLE
     Route: 042
  6. MABTHERA [Suspect]
     Indication: CENTRAL NERVOUS SYSTEM LYMPHOMA
     Dosage: ON DAY 3 OF EACH CYCLE
     Route: 042

REACTIONS (2)
  - CYTOMEGALOVIRUS INFECTION [None]
  - PNEUMOCYSTIS JIROVECI PNEUMONIA [None]
